FAERS Safety Report 15375745 (Version 1)
Quarter: 2018Q3

REPORT INFORMATION
  Report Type: Spontaneous
  Country: None (occurrence: FR)
  Receive Date: 20180912
  Receipt Date: 20180912
  Transmission Date: 20181010
  Serious: Yes (Hospitalization)
  Sender: FDA-Public Use
  Company Number: FR-LABORATOIRE HRA PHARMA-2054877

PATIENT
  Age: 28 Year
  Sex: Male

DRUGS (1)
  1. METOPIRONE [Suspect]
     Active Substance: METYRAPONE
     Indication: PITUITARY-DEPENDENT CUSHING^S SYNDROME

REACTIONS (4)
  - Transaminases increased [None]
  - Intentional overdose [Recovered/Resolved]
  - Adrenocortical insufficiency acute [None]
  - Rhabdomyolysis [None]

NARRATIVE: CASE EVENT DATE: 20170405
